FAERS Safety Report 6138399-0 (Version None)
Quarter: 2009Q1

REPORT INFORMATION
  Report Type: 
  Country: None (occurrence: None)
  Receive Date: 20090327
  Receipt Date: 20090327
  Transmission Date: 20090719
  Serious: Yes (Death, Hospitalization)
  Sender: FDA-Public Use
  Company Number: None

PATIENT
  Sex: Female
  Weight: 82.5 kg

DRUGS (9)
  1. PEG-L-ASPARAGINASE (K-H) [Suspect]
     Dosage: 4800 MG
     Dates: start: 20090211, end: 20090216
  2. PREDNISONE [Suspect]
     Dosage: 3360 MG
     Dates: end: 20090311
  3. VINCRISTINE SULFATE [Suspect]
     Dosage: 8 MG
     Dates: end: 20090305
  4. CYTARABINE [Suspect]
     Dosage: 70 MG
     Dates: end: 20090211
  5. DAUNORUBICIN HCL [Suspect]
     Dosage: 186 MG
     Dates: end: 20090305
  6. METHOTREXATE [Suspect]
     Dosage: 15 MG
     Dates: end: 20090219
  7. BACTRIM [Concomitant]
  8. ONDANSETRON [Concomitant]
  9. RANITIDINE [Concomitant]

REACTIONS (5)
  - BACK PAIN [None]
  - MUSCULAR WEAKNESS [None]
  - PANCREATITIS NECROTISING [None]
  - UNRESPONSIVE TO STIMULI [None]
  - WEIGHT DECREASED [None]
